FAERS Safety Report 7379269-X (Version None)
Quarter: 2011Q1

REPORT INFORMATION
  Report Type: 
  Country: None (occurrence: None)
  Receive Date: 20110328
  Receipt Date: 20110222
  Transmission Date: 20110831
  Serious: Yes (Hospitalization)
  Sender: FDA-Public Use
  Company Number: US-AMGEN-USACT2010006948

PATIENT
  Age: 71 Year
  Sex: Female

DRUGS (1)
  1. CINACALCET HYDROCHLORIDE [Suspect]
     Indication: HYPERPARATHYROIDISM SECONDARY
     Dosage: UNK UNK, BID
     Route: 048
     Dates: start: 20100310, end: 20101129

REACTIONS (3)
  - SINUS TACHYCARDIA [None]
  - PULMONARY EMBOLISM [None]
  - DYSPNOEA [None]
